FAERS Safety Report 13108703 (Version 1)
Quarter: 2017Q1

REPORT INFORMATION
  Report Type: Spontaneous
  Country: US (occurrence: US)
  Receive Date: 20170111
  Receipt Date: 20170111
  Transmission Date: 20170428
  Serious: Yes (Other)
  Sender: FDA-Public Use
  Company Number: None

PATIENT
  Age: 59 Year
  Sex: Female
  Weight: 99 kg

DRUGS (3)
  1. ALKASELCER PLUS [Concomitant]
  2. NORCO [Concomitant]
     Active Substance: ACETAMINOPHEN\HYDROCODONE BITARTRATE
  3. TRAMADOL ER [Suspect]
     Active Substance: TRAMADOL HYDROCHLORIDE
     Indication: FIBROMYALGIA
     Dosage: ?          QUANTITY:1 TABLET(S);?
     Route: 048

REACTIONS (14)
  - Proctalgia [None]
  - Therapy cessation [None]
  - Disorientation [None]
  - Panic reaction [None]
  - Medication residue present [None]
  - Product solubility abnormal [None]
  - Abdominal pain upper [None]
  - Product physical issue [None]
  - Product substitution issue [None]
  - Pain [None]
  - Rectal spasm [None]
  - Intestinal obstruction [None]
  - Drug ineffective [None]
  - Muscle spasms [None]

NARRATIVE: CASE EVENT DATE: 20161201
